FAERS Safety Report 25858988 (Version 1)
Quarter: 2025Q3

REPORT INFORMATION
  Report Type: Spontaneous
  Country: CN (occurrence: CN)
  Receive Date: 20250929
  Receipt Date: 20250929
  Transmission Date: 20251021
  Serious: Yes (Other)
  Sender: BRACCO
  Company Number: CN-BRACCO-2025CN06609

PATIENT
  Age: 64 Year
  Sex: Female

DRUGS (1)
  1. IOMERON [Suspect]
     Active Substance: IOMEPROL
     Indication: Computerised tomogram head
     Route: 042
     Dates: start: 20250924, end: 20250924

REACTIONS (4)
  - Coma [Recovering/Resolving]
  - Blood pressure diastolic decreased [Recovering/Resolving]
  - Urinary incontinence [Recovering/Resolving]
  - Anal incontinence [Recovering/Resolving]

NARRATIVE: CASE EVENT DATE: 20250924
